FAERS Safety Report 6040994-4 (Version None)
Quarter: 2009Q1

REPORT INFORMATION
  Report Type: 
  Country: None (occurrence: None)
  Receive Date: 20090116
  Receipt Date: 20080812
  Transmission Date: 20090719
  Serious: No
  Sender: FDA-Public Use
  Company Number: US-BRISTOL-MYERS SQUIBB COMPANY-14273445

PATIENT
  Age: 45 Year
  Sex: Male

DRUGS (4)
  1. ABILIFY [Suspect]
     Indication: DEPRESSION
     Dosage: DOSE REDUCED TO 2.5MG DAILY. 2 WEEK IN JUN08
     Dates: start: 20080601
  2. ABILIFY [Suspect]
     Indication: BIPOLAR DISORDER
     Dosage: DOSE REDUCED TO 2.5MG DAILY. 2 WEEK IN JUN08
     Dates: start: 20080601
  3. CYMBALTA [Concomitant]
     Dosage: ATLEAST 1 YEAR
  4. LAMICTAL [Concomitant]
     Dosage: 1 DOSAGE FORM: 200 (UNIT NOT CLEAR)

REACTIONS (3)
  - ANHIDROSIS [None]
  - BODY TEMPERATURE DECREASED [None]
  - OEDEMA PERIPHERAL [None]
